FAERS Safety Report 16144214 (Version 3)
Quarter: 2019Q2

REPORT INFORMATION
  Report Type: Spontaneous
  Country: ES (occurrence: ES)
  Receive Date: 20190401
  Receipt Date: 20190415
  Transmission Date: 20190711
  Serious: Yes (Other)
  Sender: FDA-Public Use
  Company Number: PHHY2019ES070128

PATIENT
  Age: 31 Year
  Sex: Female

DRUGS (4)
  1. IBUPROFEN. [Suspect]
     Active Substance: IBUPROFEN
     Indication: OTITIS MEDIA
     Dosage: 600 MG, UNK
     Route: 050
  2. AUGMENTINE [Suspect]
     Active Substance: AMOXICILLIN\CLAVULANATE POTASSIUM
     Indication: OTITIS MEDIA
     Dosage: AMOXICILLIN-CLAVULANIC ACID = 500/125 MG
     Route: 050
  3. IBUPROFEN. [Suspect]
     Active Substance: IBUPROFEN
     Dosage: 600 MG, UNK
     Route: 048
  4. AUGMENTINE [Suspect]
     Active Substance: AMOXICILLIN\CLAVULANATE POTASSIUM
     Dosage: (500/125 MG EVERY 8 HOURS)
     Route: 048

REACTIONS (6)
  - Exposure via body fluid [Unknown]
  - Exposure via partner [Unknown]
  - Dyspnoea [Recovered/Resolved]
  - Anaphylactic reaction [Recovered/Resolved]
  - Vomiting [Recovered/Resolved]
  - Urticaria [Recovered/Resolved]
